FAERS Safety Report 13841451 (Version 1)
Quarter: 2017Q3

REPORT INFORMATION
  Report Type: Spontaneous
  Country: US (occurrence: US)
  Receive Date: 20170807
  Receipt Date: 20170807
  Transmission Date: 20171127
  Serious: Yes (Hospitalization, Other)
  Sender: FDA-Public Use
  Company Number: US-TEVA-794133USA

PATIENT
  Age: 84 Year
  Sex: Male

DRUGS (5)
  1. ENZALUTAMIDE [Suspect]
     Active Substance: ENZALUTAMIDE
     Indication: HORMONE-REFRACTORY PROSTATE CANCER
     Route: 065
  2. ENZALUTAMIDE [Suspect]
     Active Substance: ENZALUTAMIDE
     Indication: HORMONE-REFRACTORY PROSTATE CANCER
     Route: 065
  3. DOCETAXEL. [Suspect]
     Active Substance: DOCETAXEL
     Indication: HORMONE-REFRACTORY PROSTATE CANCER
     Route: 065
  4. DOCETAXEL. [Suspect]
     Active Substance: DOCETAXEL
     Indication: HORMONE-REFRACTORY PROSTATE CANCER
     Route: 065
  5. DOCETAXEL. [Suspect]
     Active Substance: DOCETAXEL
     Indication: ATRIAL FIBRILLATION
     Route: 048

REACTIONS (8)
  - Acute kidney injury [Unknown]
  - Drug interaction [Recovering/Resolving]
  - Hepatotoxicity [Recovering/Resolving]
  - Pericardial haemorrhage [Recovered/Resolved]
  - Cardiogenic shock [Unknown]
  - Multiple organ dysfunction syndrome [Recovered/Resolved]
  - Bone marrow failure [Unknown]
  - Metabolic acidosis [Unknown]
